FAERS Safety Report 7633668-7 (Version None)
Quarter: 2011Q3

REPORT INFORMATION
  Report Type: 
  Country: None (occurrence: None)
  Receive Date: 20110725
  Receipt Date: 20110721
  Transmission Date: 20111222
  Serious: Yes (Hospitalization)
  Sender: FDA-Public Use
  Company Number: FR-GLAXOSMITHKLINE-B0723003A

PATIENT
  Sex: Male

DRUGS (19)
  1. PREDNISOLONE [Concomitant]
     Indication: BRONCHITIS
     Route: 048
     Dates: start: 20110408, end: 20110412
  2. AUGMENTIN '125' [Suspect]
     Indication: BRONCHITIS
     Route: 048
     Dates: start: 20110331, end: 20110408
  3. BECLOMETHASONE DIPROPIONATE [Concomitant]
     Dosage: 250MCG TWICE PER DAY
     Route: 065
  4. SIMVASTATIN [Suspect]
     Indication: HYPERCHOLESTEROLAEMIA
     Dosage: 20MG PER DAY
     Route: 048
     Dates: start: 20110416, end: 20110506
  5. EZETIMIBE [Concomitant]
     Route: 065
  6. LEXOMIL [Concomitant]
     Route: 065
  7. RAMIPRIL [Concomitant]
     Indication: MYOCARDIAL ISCHAEMIA
     Dosage: 1.25MG PER DAY
     Route: 048
     Dates: start: 20110415, end: 20110507
  8. BISOPROLOL FUMARATE [Concomitant]
     Route: 065
  9. VENTOLIN [Concomitant]
     Dosage: 2.5MG TWICE PER DAY
     Route: 055
  10. ACETAMINOPHEN [Concomitant]
     Dosage: 1G THREE TIMES PER DAY
     Route: 065
  11. REPAGLINIDE [Concomitant]
     Dosage: 2MG THREE TIMES PER DAY
     Route: 065
  12. PERMIXON [Concomitant]
     Route: 065
  13. SULFARLEM [Concomitant]
     Route: 065
  14. ARIXTRA [Suspect]
     Indication: ARTERIOGRAM CORONARY
     Dosage: 2.5MG PER DAY
     Route: 058
     Dates: start: 20110415, end: 20110416
  15. PLAVIX [Suspect]
     Indication: ARTERIOGRAM CORONARY
     Dosage: 75MG PER DAY
     Route: 048
     Dates: start: 20110415, end: 20110416
  16. ASPIRIN [Concomitant]
     Route: 065
  17. AVODART [Concomitant]
     Dosage: .5MG PER DAY
     Route: 065
  18. CLARITHROMYCIN [Concomitant]
     Indication: BRONCHITIS
     Route: 048
     Dates: start: 20110408
  19. VASTAREL [Concomitant]
     Dosage: 35MG TWICE PER DAY
     Route: 065

REACTIONS (11)
  - PRURITUS [None]
  - PLEURAL EFFUSION [None]
  - PYREXIA [None]
  - DRUG ERUPTION [None]
  - DRUG HYPERSENSITIVITY [None]
  - DRUG RASH WITH EOSINOPHILIA AND SYSTEMIC SYMPTOMS [None]
  - ASTHENIA [None]
  - EOSINOPHILIA [None]
  - ALANINE AMINOTRANSFERASE INCREASED [None]
  - PLEURISY [None]
  - MYOPERICARDITIS [None]
